FAERS Safety Report 4865499-5 (Version None)
Quarter: 2005Q4

REPORT INFORMATION
  Report Type: 
  Country: None (occurrence: None)
  Receive Date: 20051223
  Receipt Date: 20011217
  Transmission Date: 20060501
  Serious: Yes (Hospitalization)
  Sender: FDA-Public Use
  Company Number: SE-ROCHE-303592

PATIENT
  Age: 55 Year
  Sex: Male
  Weight: 72.6 kg

DRUGS (12)
  1. DACLIZUMAB [Suspect]
     Dosage: 2 DOSES.
     Route: 042
     Dates: start: 20010131, end: 20010207
  2. DACLIZUMAB [Suspect]
     Dosage: 3 DOSES.
     Route: 042
     Dates: start: 20010215, end: 20010321
  3. MYCOPHENOLATE MOFETIL [Suspect]
     Route: 065
  4. CYCLOSPORINE [Suspect]
     Route: 065
  5. PREDNISOLONE [Suspect]
     Route: 065
     Dates: start: 20010201
  6. BACTRIM DS [Concomitant]
     Dates: start: 20010131
  7. ASPIRIN [Concomitant]
     Dates: start: 20010202
  8. DIAZEPAM [Concomitant]
     Dates: start: 20010208
  9. OMEPRAZOLE [Concomitant]
     Dates: start: 20010629
  10. PRAVASTATIN [Concomitant]
     Dates: start: 20010202
  11. TACROLIMUS [Concomitant]
     Dates: start: 20010302
  12. AZATIOPRIN [Concomitant]
     Dates: start: 20010417, end: 20010628

REACTIONS (1)
  - CYTOMEGALOVIRUS INFECTION [None]
